FAERS Safety Report 18033820 (Version 5)
Quarter: 2024Q3

REPORT INFORMATION
  Report Type: Spontaneous
  Country: BR (occurrence: BR)
  Receive Date: 20200716
  Receipt Date: 20240711
  Transmission Date: 20241017
  Serious: Yes (Other)
  Sender: GLAXOSMITHKLINE
  Company Number: BR-GLAXOSMITHKLINE-BR2020AMR041673

PATIENT

DRUGS (1)
  1. BENLYSTA [Suspect]
     Active Substance: BELIMUMAB
     Indication: Systemic lupus erythematosus
     Dosage: 600 MG, MO, EVERY 30 DAYS
     Route: 042
     Dates: start: 20191028

REACTIONS (5)
  - Systemic lupus erythematosus [Not Recovered/Not Resolved]
  - Laboratory test abnormal [Unknown]
  - Incorrect product administration duration [Unknown]
  - Social problem [Unknown]
  - Product dose omission issue [Unknown]
